FAERS Safety Report 5228321-3 (Version None)
Quarter: 2007Q1

REPORT INFORMATION
  Report Type: 
  Country: None (occurrence: None)
  Receive Date: 20070205
  Receipt Date: 20070124
  Transmission Date: 20070707
  Serious: Yes (Death)
  Sender: FDA-Public Use
  Company Number: ZA-JNJFOC-20061105076

PATIENT
  Sex: Female

DRUGS (2)
  1. REVELLEX [Suspect]
     Dosage: THIRD DOSE
     Route: 042
  2. REVELLEX [Suspect]
     Indication: CROHN'S DISEASE
     Dosage: 3 INFUSIONS
     Route: 042

REACTIONS (1)
  - DEATH [None]
